FAERS Safety Report 22053344 (Version 1)
Quarter: 2023Q1

REPORT INFORMATION
  Report Type: Spontaneous
  Country: US (occurrence: US)
  Receive Date: 20230302
  Receipt Date: 20230302
  Transmission Date: 20230418
  Serious: Yes (Other)
  Sender: FDA-Public Use
  Company Number: US-MYLANLABS-2023M1022665

PATIENT
  Age: 43 Year
  Sex: Male

DRUGS (2)
  1. BORTEZOMIB [Suspect]
     Active Substance: BORTEZOMIB
     Indication: Acquired Von Willebrand^s disease
     Dosage: 1.3 MILLIGRAM/SQ. METER, CYCLE, RECEIVED 6 CYCLES, BIWEEKLY IN CYCLES OF 2 WEEKS AND 1 WEEK OFF
     Route: 065
  2. BORTEZOMIB [Suspect]
     Active Substance: BORTEZOMIB
     Indication: Hypergammaglobulinaemia benign monoclonal

REACTIONS (1)
  - Drug ineffective [Unknown]
